FAERS Safety Report 10311528 (Version 2)
Quarter: 2014Q3

REPORT INFORMATION
  Report Type: Spontaneous
  Country: GB (occurrence: GB)
  Receive Date: 20140717
  Receipt Date: 20140722
  Transmission Date: 20150326
  Serious: Yes (Other)
  Sender: FDA-Public Use
  Company Number: GB-GLAXOSMITHKLINE-B1012828A

PATIENT
  Age: 46 Year
  Sex: Male

DRUGS (3)
  1. PIRINASE HAYFEVER 0.05% NASAL SPRAY [Suspect]
     Active Substance: FLUTICASONE PROPIONATE
     Indication: SEASONAL ALLERGY
     Dosage: 2SPR IN THE MORNING
     Route: 045
     Dates: start: 20140401
  2. NIQUITIN [Concomitant]
     Active Substance: NICOTINE
  3. OPTREX [Concomitant]
     Indication: OCULAR HYPERAEMIA

REACTIONS (1)
  - Eye haemorrhage [Unknown]

NARRATIVE: CASE EVENT DATE: 20140705
